FAERS Safety Report 9668583 (Version 2)
Quarter: 2013Q4

REPORT INFORMATION
  Report Type: Spontaneous
  Country: FR (occurrence: FR)
  Receive Date: 20131105
  Receipt Date: 20131118
  Transmission Date: 20140711
  Serious: Yes (Hospitalization)
  Sender: FDA-Public Use
  Company Number: FR-009507513-1310FRA013068

PATIENT
  Sex: Female

DRUGS (7)
  1. INTRONA [Suspect]
     Indication: CHRONIC MYELOID LEUKAEMIA
     Dosage: 3 MILLION IU, QW
     Route: 058
     Dates: start: 1994, end: 200210
  2. HYDREA [Concomitant]
     Indication: CHRONIC MYELOID LEUKAEMIA
     Dosage: UNK
     Dates: start: 1994
  3. BETATOP [Concomitant]
     Indication: HYPERTENSION
     Dosage: UNK
     Route: 048
     Dates: start: 1996, end: 200007
  4. ARACYTINE [Concomitant]
     Indication: CHRONIC MYELOID LEUKAEMIA
     Dosage: UNK
     Route: 048
     Dates: start: 1994
  5. KENZEN [Concomitant]
     Indication: HYPERTENSION
     Dosage: UNK
     Route: 048
     Dates: start: 1996, end: 200007
  6. LEVOTHYROX [Concomitant]
     Indication: HYPOTHYROIDISM
     Dosage: UNK
     Route: 048
     Dates: start: 1996
  7. PRITOR [Concomitant]
     Indication: HYPERTENSION
     Dosage: UNK
     Dates: start: 1996

REACTIONS (1)
  - Dyspnoea exertional [Not Recovered/Not Resolved]
